FAERS Safety Report 5309089-9 (Version None)
Quarter: 2007Q2

REPORT INFORMATION
  Report Type: 
  Country: None (occurrence: None)
  Receive Date: 20070426
  Receipt Date: 20070419
  Transmission Date: 20071010
  Serious: Yes (Hospitalization)
  Sender: FDA-Public Use
  Company Number: AU-MERCK-0609AUS00062

PATIENT
  Age: 79 Year
  Sex: Female

DRUGS (5)
  1. FOSAMAX [Suspect]
     Indication: OSTEOPOROSIS
     Route: 048
     Dates: start: 20020501
  2. AMLODIPINE BESYLATE [Concomitant]
     Route: 065
  3. ASPIRIN [Concomitant]
     Route: 065
  4. INDOCIN [Concomitant]
     Route: 065
  5. DIAZEPAM [Concomitant]
     Route: 065

REACTIONS (4)
  - DRY THROAT [None]
  - DYSPHAGIA [None]
  - INTESTINAL OBSTRUCTION [None]
  - TONGUE DISCOLOURATION [None]
